FAERS Safety Report 15987649 (Version 1)
Quarter: 2019Q1

REPORT INFORMATION
  Report Type: Spontaneous
  Country: BE (occurrence: BE)
  Receive Date: 20190220
  Receipt Date: 20190220
  Transmission Date: 20190418
  Serious: Yes (Other)
  Sender: FDA-Public Use
  Company Number: BE-PFIZER INC-2019072143

PATIENT
  Age: 79 Year
  Sex: Male

DRUGS (2)
  1. PEMETREXED. [Suspect]
     Active Substance: PEMETREXED
     Indication: MESOTHELIOMA
     Dosage: UNK
     Route: 065
     Dates: start: 201804
  2. CARBOPLATIN. [Suspect]
     Active Substance: CARBOPLATIN
     Indication: MESOTHELIOMA
     Dosage: UNK (AUC 4)
     Route: 065
     Dates: start: 201804

REACTIONS (2)
  - Neutropenia [Recovered/Resolved]
  - Sepsis [Recovered/Resolved]
